FAERS Safety Report 6276556-3 (Version None)
Quarter: 2009Q3

REPORT INFORMATION
  Report Type: 
  Country: None (occurrence: None)
  Receive Date: 20090722
  Receipt Date: 20000531
  Transmission Date: 20100115
  Serious: No
  Sender: FDA-Public Use
  Company Number: 2000COU0736

PATIENT
  Age: 29 Year
  Sex: Female
  Weight: 90 kg

DRUGS (1)
  1. COUMADIN [Suspect]
     Indication: VENOUS THROMBOSIS
     Dosage: 2.5-7.5 MG DLY
     Route: 048
     Dates: start: 20000301, end: 20000530

REACTIONS (1)
  - PREGNANCY [None]
